FAERS Safety Report 5196216-X (Version None)
Quarter: 2007Q1

REPORT INFORMATION
  Report Type: 
  Country: None (occurrence: None)
  Receive Date: 20070102
  Receipt Date: 20061221
  Transmission Date: 20070707
  Serious: Yes (Other)
  Sender: FDA-Public Use
  Company Number: BR-PFIZER INC-2006046017

PATIENT
  Sex: Female

DRUGS (3)
  1. DEPO-PROVERA [Suspect]
     Indication: CONTRACEPTION
     Route: 030
     Dates: start: 20000101, end: 20000101
  2. DEPO-PROVERA [Suspect]
     Route: 030
     Dates: start: 20050920, end: 20050920
  3. DEPO-PROVERA [Suspect]
     Route: 030
     Dates: start: 20061209, end: 20061209

REACTIONS (7)
  - AMENORRHOEA [None]
  - ARTHRALGIA [None]
  - HEPATIC CYST [None]
  - METRORRHAGIA [None]
  - OSTEOARTHRITIS [None]
  - PRURITUS GENITAL [None]
  - UTERINE INFLAMMATION [None]
